FAERS Safety Report 24362807 (Version 3)
Quarter: 2025Q1

REPORT INFORMATION
  Report Type: Report from Study
  Country: ES (occurrence: ES)
  Receive Date: 20240925
  Receipt Date: 20250304
  Transmission Date: 20250409
  Serious: Yes (Hospitalization)
  Sender: SANOFI AVENTIS
  Company Number: ES-REGENERON PHARMACEUTICALS, INC.-2024-125017

PATIENT
  Age: 60 Year
  Sex: Female
  Weight: 115.7 kg

DRUGS (20)
  1. UBAMATAMAB [Suspect]
     Active Substance: UBAMATAMAB
     Indication: Ovarian cancer
     Dosage: 800 MG, SINGLE
     Route: 042
     Dates: start: 20240907, end: 20241008
  2. UBAMATAMAB [Suspect]
     Active Substance: UBAMATAMAB
     Dosage: 1 MG, QD
     Route: 042
     Dates: start: 20240916, end: 20240916
  3. UBAMATAMAB [Suspect]
     Active Substance: UBAMATAMAB
     Dosage: 20 MG, SINGLE
     Route: 042
     Dates: start: 20240923, end: 20240923
  4. UBAMATAMAB [Suspect]
     Active Substance: UBAMATAMAB
     Dosage: 800 MG, SINGLE
     Route: 042
     Dates: start: 20241007, end: 20241008
  5. UBAMATAMAB [Suspect]
     Active Substance: UBAMATAMAB
     Dosage: 800 MG, Q3W
     Route: 042
     Dates: start: 20241016
  6. SARILUMAB [Suspect]
     Active Substance: SARILUMAB
     Indication: Ovarian cancer
     Route: 042
     Dates: start: 20240916, end: 20240916
  7. DEXKETOPROFEN [Concomitant]
     Active Substance: DEXKETOPROFEN
     Indication: Myalgia
     Route: 048
     Dates: start: 202002, end: 20240915
  8. DEXKETOPROFEN [Concomitant]
     Active Substance: DEXKETOPROFEN
     Dosage: 50 MG, TID
     Route: 042
     Dates: start: 20240917, end: 20240918
  9. ESCITALOPRAM OXALATE [Concomitant]
     Active Substance: ESCITALOPRAM OXALATE
     Indication: Depression
     Dosage: 15 MG, QD
     Route: 048
     Dates: start: 202306, end: 20240915
  10. MAGNESIUM HYDROXIDE [Concomitant]
     Active Substance: MAGNESIUM HYDROXIDE
     Indication: Nutritional supplementation
     Dosage: 350 MG, QD
     Route: 048
     Dates: start: 202308
  11. MELATONIN [Concomitant]
     Active Substance: MELATONIN
     Indication: Insomnia
     Dosage: 2.5 MG, QD
     Route: 048
     Dates: start: 202308
  12. ZOLMITRIPTAN [Concomitant]
     Active Substance: ZOLMITRIPTAN
     Indication: Migraine
     Route: 048
     Dates: start: 201710
  13. DEXCHLORPHENIRAMINE [Concomitant]
     Active Substance: DEXCHLORPHENIRAMINE
     Indication: Allergy prophylaxis
     Dosage: 5 MG, SINGLE
     Route: 042
     Dates: start: 20240917, end: 20240917
  14. MAGNESIUM HYDROXIDE [Concomitant]
     Active Substance: MAGNESIUM HYDROXIDE
     Indication: Nutritional supplementation
     Dosage: 350 MG, QD
     Route: 048
     Dates: start: 202308
  15. METAMIZOLE [Concomitant]
     Active Substance: METAMIZOLE
     Indication: Abdominal pain
     Route: 042
     Dates: start: 20240917, end: 20240918
  16. ONDANSETRON HYDROCHLORIDE [Concomitant]
     Active Substance: ONDANSETRON HYDROCHLORIDE
     Indication: Prophylaxis of nausea and vomiting
     Route: 042
     Dates: start: 20240918, end: 20240918
  17. MAGNESIUM [Concomitant]
     Active Substance: MAGNESIUM
     Indication: Nutritional supplementation
     Dosage: 350 MG, QD
     Route: 048
     Dates: start: 202308
  18. METOCLOPRAMIDE [Concomitant]
     Active Substance: METOCLOPRAMIDE
     Indication: Prophylaxis of nausea and vomiting
     Dosage: 10 MG, TID
     Route: 042
     Dates: start: 20240917, end: 20240918
  19. METOCLOPRAMIDE [Concomitant]
     Active Substance: METOCLOPRAMIDE
     Indication: Prophylaxis of nausea and vomiting
     Dosage: 10 MG, TID
     Route: 042
     Dates: start: 20240917, end: 20240918
  20. MORPHINE SULFATE [Concomitant]
     Active Substance: MORPHINE SULFATE
     Indication: Abdominal pain
     Dosage: 5 MG, Q6H
     Route: 042
     Dates: start: 20240918, end: 20240918

REACTIONS (2)
  - Abdominal pain [Recovered/Resolved]
  - Abdominal pain [Recovered/Resolved]

NARRATIVE: CASE EVENT DATE: 20240917
